FAERS Safety Report 25655040 (Version 1)
Quarter: 2025Q3

REPORT INFORMATION
  Report Type: Spontaneous
  Country: JP (occurrence: JP)
  Receive Date: 20250807
  Receipt Date: 20250807
  Transmission Date: 20251020
  Serious: Yes (Other)
  Sender: PFIZER
  Company Number: JP-PFIZER INC-PV202500030503

PATIENT
  Age: 77 Year
  Sex: Female
  Weight: 45 kg

DRUGS (18)
  1. OXALIPLATIN [Suspect]
     Active Substance: OXALIPLATIN
     Indication: Colon cancer
     Dosage: 100 MG, 1X/DAY
     Route: 041
     Dates: start: 20231109, end: 20241031
  2. OXALIPLATIN [Suspect]
     Active Substance: OXALIPLATIN
     Indication: Colon cancer
     Dosage: 5 MG, 1X/DAY
     Route: 041
     Dates: start: 20241017, end: 20241031
  3. DECADRON [Concomitant]
     Active Substance: DEXAMETHASONE
     Dosage: 2 TABLETS IN 2 DIVIDED DOSES AFTER BREAKFAST AND DINNER
     Route: 048
  4. APREPITANT [Concomitant]
     Active Substance: APREPITANT
     Route: 048
  5. MINOCYCLINE HYDROCHLORIDE [Concomitant]
     Active Substance: MINOCYCLINE HYDROCHLORIDE
     Dosage: 1 CAPSULE IN 1 DOSE AFTER BREAKFAST
     Route: 048
  6. NAUZELIN [Concomitant]
     Active Substance: DOMPERIDONE
     Route: 048
  7. HEPARINOID [Concomitant]
     Dosage: APPLIED 4 TIMES A DAY AS APPROPRIATE
     Route: 061
  8. BRINZOLAMIDE\TIMOLOL MALEATE [Concomitant]
     Active Substance: BRINZOLAMIDE\TIMOLOL MALEATE
     Dosage: TWICE A DAY FOR BOTH EYES, IN THE MORNING AND IN THE EVENING
     Route: 047
  9. HEPARIN SODIUM [Concomitant]
     Active Substance: HEPARIN SODIUM
  10. PALONOSETRON [Concomitant]
     Active Substance: PALONOSETRON
     Route: 041
  11. VECTIBIX [Concomitant]
     Active Substance: PANITUMUMAB
     Route: 041
     Dates: start: 20241031
  12. LEVOLEUCOVORIN CALCIUM [Concomitant]
     Active Substance: LEVOLEUCOVORIN CALCIUM
     Route: 041
     Dates: start: 20241031
  13. FLUOROURACIL [Concomitant]
     Active Substance: FLUOROURACIL
  14. SOLU-CORTEF [Concomitant]
     Active Substance: HYDROCORTISONE SODIUM SUCCINATE
  15. LOCOID [Concomitant]
     Active Substance: HYDROCORTISONE BUTYRATE
     Dosage: 2X/DAY, APPLY APPROPRIETLY (FACE: WHEN SKIN ERUPTION DEVELOPED)
     Route: 061
  16. BETAMETHASONE DIPROPIONATE [Concomitant]
     Active Substance: BETAMETHASONE DIPROPIONATE
     Dosage: 2X/DAY, APPLY APPROPRIETLY (EXCEPT FOR FACE: WHEN SKIN ERUPTION DEVELOPED)
     Route: 061
  17. POSTERISAN FORTE [ESCHERICHIA COLI;HYDROCORTISONE] [Concomitant]
     Dosage: 3X/DAY, APPLY APPROPRIETLY
     Route: 061
  18. DEXAMETHASONE SODIUM PHOSPHATE [Concomitant]
     Active Substance: DEXAMETHASONE SODIUM PHOSPHATE

REACTIONS (4)
  - Hypersensitivity [Recovered/Resolved]
  - Pruritus [Recovered/Resolved]
  - Erythema [Recovered/Resolved]
  - Sputum retention [Recovered/Resolved]

NARRATIVE: CASE EVENT DATE: 20241031
